FAERS Safety Report 17297402 (Version 1)
Quarter: 2020Q1

REPORT INFORMATION
  Report Type: Spontaneous
  Country: US (occurrence: US)
  Receive Date: 20200122
  Receipt Date: 20200122
  Transmission Date: 20200409
  Serious: No
  Sender: FDA-Public Use
  Company Number: US-ITALFARMACO SPA-2079282

PATIENT
  Age: 75 Year
  Sex: Female

DRUGS (13)
  1. RANITIDINE. [Concomitant]
     Active Substance: RANITIDINE
  2. GABAPENTIN. [Concomitant]
     Active Substance: GABAPENTIN
  3. BACLOFEN. [Concomitant]
     Active Substance: BACLOFEN
  4. TIGLUTIK [Suspect]
     Active Substance: RILUZOLE
     Indication: AMYOTROPHIC LATERAL SCLEROSIS
     Dates: start: 20191231
  5. CITALOPRAM [Concomitant]
     Active Substance: CITALOPRAM HYDROBROMIDE
  6. PROLIA [Concomitant]
     Active Substance: DENOSUMAB
  7. METFORMIN HYDROCHLORIDE. [Concomitant]
     Active Substance: METFORMIN HYDROCHLORIDE
  8. WARFARIN SODIUM. [Concomitant]
     Active Substance: WARFARIN SODIUM
  9. COQ10 [Concomitant]
     Active Substance: UBIDECARENONE
  10. CALCIUM + VIT D [Concomitant]
     Active Substance: CALCIUM\VITAMIN D
  11. ROSUVASTATIN. [Concomitant]
     Active Substance: ROSUVASTATIN
  12. DILTIAZEM CD [Concomitant]
     Active Substance: DILTIAZEM
  13. ATROPINE. [Concomitant]
     Active Substance: ATROPINE

REACTIONS (7)
  - Paraesthesia oral [Not Recovered/Not Resolved]
  - Dyspepsia [Not Recovered/Not Resolved]
  - Headache [Not Recovered/Not Resolved]
  - Fatigue [Not Recovered/Not Resolved]
  - Hypertension [Not Recovered/Not Resolved]
  - Oesophageal pain [Not Recovered/Not Resolved]
  - Nausea [Not Recovered/Not Resolved]
